FAERS Safety Report 18666504 (Version 3)
Quarter: 2021Q1

REPORT INFORMATION
  Report Type: Spontaneous
  Country: JP (occurrence: JP)
  Receive Date: 20201227
  Receipt Date: 20210301
  Transmission Date: 20210419
  Serious: Yes (Other)
  Sender: FDA-Public Use
  Company Number: NVSJ2020JP014278

PATIENT
  Age: 52 Year
  Sex: Male

DRUGS (1)
  1. COSENTYX [Suspect]
     Active Substance: SECUKINUMAB
     Indication: PSORIASIS
     Dosage: 300 MG
     Route: 058

REACTIONS (7)
  - Dermal cyst [Unknown]
  - Skin exfoliation [Unknown]
  - Erythema [Unknown]
  - Arthralgia [Recovering/Resolving]
  - Dermatitis exfoliative generalised [Recovering/Resolving]
  - Psoriasis [Unknown]
  - Pyrexia [Unknown]

NARRATIVE: CASE EVENT DATE: 20200320
